FAERS Safety Report 19720116 (Version 2)
Quarter: 2021Q3

REPORT INFORMATION
  Report Type: Spontaneous
  Country: US (occurrence: US)
  Receive Date: 20210818
  Receipt Date: 20210818
  Transmission Date: 20211014
  Serious: Yes (Other)
  Sender: FDA-Public Use
  Company Number: US-SA-2021SA269591

PATIENT
  Age: 25 Year
  Sex: Female

DRUGS (3)
  1. TOUJEO [Suspect]
     Active Substance: INSULIN GLARGINE
     Dosage: 34 IU, QD
     Route: 065
     Dates: start: 2021
  2. TOUJEO [Suspect]
     Active Substance: INSULIN GLARGINE
     Indication: TYPE 1 DIABETES MELLITUS
     Dosage: 17 IU, BID
     Route: 065
     Dates: end: 202105
  3. INSULIN LISPRO [Suspect]
     Active Substance: INSULIN LISPRO
     Dosage: 10 IU, UNK
     Route: 065

REACTIONS (3)
  - Diabetes mellitus inadequate control [Recovering/Resolving]
  - Retinopathy [Unknown]
  - Inappropriate schedule of product administration [Unknown]
